FAERS Safety Report 25181513 (Version 2)
Quarter: 2025Q2

REPORT INFORMATION
  Report Type: Spontaneous
  Country: US (occurrence: US)
  Receive Date: 20250410
  Receipt Date: 20250428
  Transmission Date: 20250717
  Serious: Yes (Other)
  Sender: LUPIN
  Company Number: US-LUPIN PHARMACEUTICALS INC.-2025-02995

PATIENT
  Age: 34 Year

DRUGS (4)
  1. DOXYCYCLINE [Suspect]
     Active Substance: DOXYCYCLINE
     Indication: Gonococcal infection
     Route: 065
  2. AZITHROMYCIN [Suspect]
     Active Substance: AZITHROMYCIN
     Indication: Gonococcal infection
  3. GENTAMICIN [Concomitant]
     Active Substance: GENTAMICIN
     Indication: Gonococcal infection
  4. CIPROFLOXACIN [Concomitant]
     Active Substance: CIPROFLOXACIN
     Indication: Gonococcal infection
     Route: 065

REACTIONS (2)
  - Drug resistance [Unknown]
  - Product dose omission in error [Unknown]
